FAERS Safety Report 12828902 (Version 1)
Quarter: 2016Q4

REPORT INFORMATION
  Report Type: Spontaneous
  Country: US (occurrence: US)
  Receive Date: 20161007
  Receipt Date: 20161007
  Transmission Date: 20170207
  Serious: No
  Sender: FDA-Public Use
  Company Number: US-SA-2015SA175407

PATIENT
  Age: 46 Year
  Sex: Female

DRUGS (10)
  1. TECFIDERA [Concomitant]
     Active Substance: DIMETHYL FUMARATE
     Dosage: STRENGTH: 240 MG
  2. AUBAGIO [Suspect]
     Active Substance: TERIFLUNOMIDE
     Indication: MULTIPLE SCLEROSIS
     Route: 048
     Dates: start: 20150916, end: 20151028
  3. IBUPROFEN. [Concomitant]
     Active Substance: IBUPROFEN
     Dosage: STRENGTH: 200 MG
  4. OMEPRAZOLE. [Concomitant]
     Active Substance: OMEPRAZOLE
     Dosage: STRENGTH: 20 MG
  5. BACLOFEN. [Concomitant]
     Active Substance: BACLOFEN
     Dosage: STRENGTH: 10 MG
  6. APAP [Concomitant]
     Active Substance: ACETAMINOPHEN
     Dosage: STRENGTH: 500 MG
  7. DICYCLOMINE [Concomitant]
     Active Substance: DICYCLOMINE HYDROCHLORIDE
     Dosage: STRENGTH: 20 MG
  8. METHYLPRED [Concomitant]
     Active Substance: METHYLPREDNISOLONE
     Dosage: STRENGTH: 4 MG
  9. SIMVASTATIN. [Concomitant]
     Active Substance: SIMVASTATIN
     Dosage: STRENGTH: 20 MG
  10. LEVOTHYROXINE. [Concomitant]
     Active Substance: LEVOTHYROXINE
     Dosage: STRENGTH: 75 MCG

REACTIONS (2)
  - Pyrexia [Not Recovered/Not Resolved]
  - Diarrhoea [Not Recovered/Not Resolved]

NARRATIVE: CASE EVENT DATE: 20150928
